FAERS Safety Report 9753752 (Version 1)
Quarter: 2013Q4

REPORT INFORMATION
  Report Type: Spontaneous
  Country: US (occurrence: US)
  Receive Date: 20131213
  Receipt Date: 20131213
  Transmission Date: 20140711
  Serious: No
  Sender: FDA-Public Use
  Company Number: US-GILEAD-2010-0026738

PATIENT
  Sex: Female

DRUGS (12)
  1. LETAIRIS [Suspect]
     Indication: PULMONARY ARTERIAL HYPERTENSION
     Route: 048
     Dates: start: 20100111
  2. NAPROXEN [Concomitant]
  3. ZEBETA [Concomitant]
  4. SINGULAIR [Concomitant]
  5. ATIVAN [Concomitant]
  6. ZOLOFT [Concomitant]
  7. LIPITOR [Concomitant]
  8. FEMARA [Concomitant]
  9. MULTIVITAMIN [Concomitant]
  10. PRILOSEC OTC [Concomitant]
  11. ZETIA [Concomitant]
  12. VITAMIN C [Concomitant]

REACTIONS (2)
  - Dry mouth [Unknown]
  - Chapped lips [Unknown]
